FAERS Safety Report 17207225 (Version 1)
Quarter: 2019Q4

REPORT INFORMATION
  Report Type: Spontaneous
  Country: US (occurrence: US)
  Receive Date: 20191227
  Receipt Date: 20191227
  Transmission Date: 20200122
  Serious: Yes (Other)
  Sender: FDA-Public Use
  Company Number: NVSC2019US079190

PATIENT
  Sex: Female

DRUGS (1)
  1. BIMATOPROST. [Suspect]
     Active Substance: BIMATOPROST
     Indication: PRODUCT USED FOR UNKNOWN INDICATION
     Dosage: 0.03 %, QD (1X DAILY)
     Route: 065

REACTIONS (4)
  - Lacrimation increased [Unknown]
  - Eye haemorrhage [Unknown]
  - Alopecia [Unknown]
  - Eye pruritus [Unknown]
